FAERS Safety Report 4834682-7 (Version None)
Quarter: 2005Q4

REPORT INFORMATION
  Report Type: 
  Country: None (occurrence: None)
  Receive Date: 20051122
  Receipt Date: 20050622
  Transmission Date: 20060501
  Serious: No
  Sender: FDA-Public Use
  Company Number: US-BRISTOL-MYERS SQUIBB COMPANY-13012661

PATIENT
  Age: 75 Year
  Sex: Male
  Weight: 83 kg

DRUGS (6)
  1. PRAVACHOL [Suspect]
     Indication: CORONARY ARTERY DISEASE
     Dosage: SECOND REFILL: LOT #: 4H75403 EXPIRATION DATE OCT-2007.
     Route: 048
     Dates: start: 20040112, end: 20050413
  2. TENORMIN [Concomitant]
     Indication: HYPERTENSION
     Route: 048
     Dates: start: 19940101
  3. SYNTHROID [Concomitant]
     Indication: THYROID DISORDER
     Route: 048
     Dates: start: 19940101
  4. ASPIRIN [Concomitant]
     Route: 048
  5. ASCORBIC ACID [Concomitant]
     Dates: start: 19990101
  6. MULTI-VITAMIN [Concomitant]
     Dosage: WITHOUT IRON AND COPPER
     Route: 048
     Dates: start: 19980101

REACTIONS (2)
  - HYPERHIDROSIS [None]
  - NEUROPATHY PERIPHERAL [None]
